FAERS Safety Report 11891428 (Version 1)
Quarter: 2016Q1

REPORT INFORMATION
  Report Type: Spontaneous
  Country: US (occurrence: US)
  Receive Date: 20160106
  Receipt Date: 20160106
  Transmission Date: 20160526
  Serious: Yes (Hospitalization, Other)
  Sender: FDA-Public Use
  Company Number: US-ROCHE-1689629

PATIENT
  Age: 53 Year
  Sex: Female

DRUGS (1)
  1. CELLCEPT [Suspect]
     Active Substance: MYCOPHENOLATE MOFETIL\MYCOPHENOLATE MOFETIL HYDROCHLORIDE
     Indication: RENAL AND PANCREAS TRANSPLANT
     Dosage: ABOUT 15 YEARS AGO
     Route: 065

REACTIONS (2)
  - Pancreas transplant rejection [Recovered/Resolved with Sequelae]
  - Transplant failure [Unknown]

NARRATIVE: CASE EVENT DATE: 20151225
